FAERS Safety Report 15447912 (Version 2)
Quarter: 2018Q4

REPORT INFORMATION
  Report Type: Report from Study
  Country: PK (occurrence: PK)
  Receive Date: 20180928
  Receipt Date: 20181003
  Transmission Date: 20190204
  Serious: Yes (Death)
  Sender: FDA-Public Use
  Company Number: PHHY2018PK107760

PATIENT
  Age: 67 Year
  Sex: Female
  Weight: 38 kg

DRUGS (1)
  1. AFINITOR [Suspect]
     Active Substance: EVEROLIMUS
     Indication: NEUROENDOCRINE TUMOUR
     Dosage: 10 MG, QD
     Route: 048
     Dates: start: 20171231

REACTIONS (2)
  - Haemoglobin decreased [Unknown]
  - Death [Fatal]

NARRATIVE: CASE EVENT DATE: 20180529
